FAERS Safety Report 9165412 (Version 1)
Quarter: 2013Q1

REPORT INFORMATION
  Report Type: Spontaneous
  Country: FR (occurrence: FR)
  Receive Date: 20130315
  Receipt Date: 20130315
  Transmission Date: 20140127
  Serious: Yes (Disabling, Other)
  Sender: FDA-Public Use
  Company Number: PHHY2013FR025571

PATIENT
  Age: 35 Year
  Sex: Male

DRUGS (4)
  1. LEPONEX [Suspect]
     Dosage: 250 MG, 1 DF DAILY
     Route: 048
  2. RISPERDAL [Concomitant]
     Dosage: 4 MG, 1 DF DAILY
  3. FLUVOXAMINE [Concomitant]
     Dosage: 50 MG, UNK
     Route: 048
  4. LYSANXIA [Concomitant]
     Dosage: 10 MG, 1-2 DF DAILY
     Route: 048

REACTIONS (1)
  - Chronic lymphocytic leukaemia [Unknown]
